FAERS Safety Report 9459481 (Version 1)
Quarter: 2013Q3

REPORT INFORMATION
  Report Type: Spontaneous
  Country: PT (occurrence: PT)
  Receive Date: 20130815
  Receipt Date: 20130815
  Transmission Date: 20140515
  Serious: Yes (Death, Life-Threatening, Hospitalization, Other)
  Sender: FDA-Public Use
  Company Number: PT-MERCK-1308PRT001696

PATIENT
  Age: 38 Year
  Sex: Female
  Weight: 52 kg

DRUGS (8)
  1. TEMODAL [Suspect]
     Indication: GLIOBLASTOMA MULTIFORME
     Route: 048
     Dates: start: 20130405, end: 20130409
  2. TEMODAL [Suspect]
     Dosage: 20 MG, QD
     Route: 048
     Dates: start: 20130405, end: 20130409
  3. TEMOZOLOMIDE [Suspect]
     Indication: GLIOBLASTOMA MULTIFORME
     Dosage: 200 MG, QD; TEMOMEDAC
     Route: 048
     Dates: start: 20130405, end: 20130409
  4. DIPYRONE MAGNESIUM [Concomitant]
     Indication: ANALGESIC THERAPY
     Dosage: 575 MG, PRN
     Route: 048
     Dates: start: 20130302, end: 20130428
  5. GRANISETRON [Concomitant]
     Indication: ANTIEMETIC SUPPORTIVE CARE
     Route: 048
     Dates: start: 20130405, end: 20130409
  6. DEXAMETHASONE [Concomitant]
     Indication: OEDEMA
     Route: 048
     Dates: start: 20130125, end: 20130528
  7. DIPLEXIL [Concomitant]
     Indication: CONVULSION
     Dosage: 1000 MG, QD
     Route: 048
     Dates: start: 20130302, end: 20130528
  8. ESOMEPRAZOLE [Concomitant]
     Indication: PROPHYLAXIS AGAINST GASTROINTESTINAL ULCER
     Route: 048
     Dates: start: 20130125, end: 20130528

REACTIONS (2)
  - Purpura [Fatal]
  - Pancytopenia [Fatal]
